FAERS Safety Report 5402076-1 (Version None)
Quarter: 2007Q3

REPORT INFORMATION
  Report Type: 
  Country: None (occurrence: None)
  Receive Date: 20070727
  Receipt Date: 20060714
  Transmission Date: 20080115
  Serious: Yes (Death, Hospitalization)
  Sender: FDA-Public Use
  Company Number: THYM-10987

PATIENT
  Age: 61 Year
  Sex: Male
  Weight: 90.4 kg

DRUGS (13)
  1. THYMOGLOBULIN [Suspect]
     Indication: LIVER TRANSPLANT
     Dosage: 136 MG ONCE IV
     Route: 042
     Dates: start: 20060613, end: 20060613
  2. BACTROBAN [Concomitant]
  3. BUMEX [Concomitant]
  4. ZOSYN [Concomitant]
  5. K-LYTE [Concomitant]
  6. PROTONIX [Concomitant]
  7. LACTULOSE [Concomitant]
  8. SODIUM CHLORIDE [Concomitant]
  9. HIBICLENS [Concomitant]
  10. TYLENOL (CAPLET) [Concomitant]
  11. BENADRYL [Concomitant]
  12. ALBUMIN (HUMAN) [Concomitant]
  13. MORPHINE [Concomitant]

REACTIONS (26)
  - ABDOMINAL INFECTION [None]
  - ACIDOSIS [None]
  - ASCITES [None]
  - ASCITES INFECTION [None]
  - CANDIDIASIS [None]
  - COAGULOPATHY [None]
  - CONTINUOUS HAEMODIAFILTRATION [None]
  - CONVULSION [None]
  - DISSEMINATED INTRAVASCULAR COAGULATION [None]
  - ENCEPHALOPATHY [None]
  - ENTEROCOCCAL INFECTION [None]
  - HYPOTENSION [None]
  - KLEBSIELLA INFECTION [None]
  - LUNG INFECTION [None]
  - MENTAL STATUS CHANGES [None]
  - MULTI-ORGAN FAILURE [None]
  - MYOCLONUS [None]
  - POSTOPERATIVE RENAL FAILURE [None]
  - PROCEDURAL COMPLICATION [None]
  - PULMONARY OEDEMA [None]
  - RENAL FAILURE ACUTE [None]
  - RESPIRATORY FAILURE [None]
  - SEPSIS [None]
  - SEPTIC SHOCK [None]
  - SPUTUM CULTURE POSITIVE [None]
  - SUBDURAL HAEMATOMA [None]
